FAERS Safety Report 7024726-9 (Version None)
Quarter: 2010Q3

REPORT INFORMATION
  Report Type: 
  Country: None (occurrence: None)
  Receive Date: 20100929
  Receipt Date: 20100921
  Transmission Date: 20110219
  Serious: Yes (Other)
  Sender: FDA-Public Use
  Company Number: 2010SP050568

PATIENT
  Age: 25 Year
  Sex: Female
  Weight: 56 kg

DRUGS (1)
  1. NUVARING [Suspect]
     Indication: CONTRACEPTION
     Dosage: QM;VAG
     Route: 067
     Dates: start: 20080301

REACTIONS (4)
  - HYPERSENSITIVITY [None]
  - PNEUMONIA MYCOPLASMAL [None]
  - RESPIRATORY TRACT INFECTION [None]
  - VAGINAL HAEMORRHAGE [None]
